FAERS Safety Report 9351947 (Version 1)
Quarter: 2013Q2

REPORT INFORMATION
  Report Type: Spontaneous
  Country: CN (occurrence: CN)
  Receive Date: 20130617
  Receipt Date: 20130617
  Transmission Date: 20140414
  Serious: Yes (Other)
  Sender: FDA-Public Use
  Company Number: CN-GLAXOSMITHKLINE-B0900110A

PATIENT
  Age: 34 Year
  Sex: Male
  Weight: 75 kg

DRUGS (2)
  1. SEROXAT [Suspect]
     Indication: MENTAL DISORDER
     Dosage: 20MG PER DAY
     Route: 048
     Dates: start: 2011
  2. CONCURRENT MEDICATIONS [Concomitant]

REACTIONS (2)
  - Drug dependence [Not Recovered/Not Resolved]
  - Obesity [Not Recovered/Not Resolved]
